FAERS Safety Report 8378627-4 (Version None)
Quarter: 2012Q2

REPORT INFORMATION
  Report Type: 
  Country: None (occurrence: None)
  Receive Date: 20120522
  Receipt Date: 20110429
  Transmission Date: 20120825
  Serious: No
  Sender: FDA-Public Use
  Company Number: US-ASTRAZENECA-2011SE24836

PATIENT
  Sex: Male

DRUGS (2)
  1. ALLEGRA [Suspect]
     Route: 048
     Dates: start: 20110301
  2. OMEPRAZOLE [Suspect]
     Route: 048

REACTIONS (1)
  - FEELING ABNORMAL [None]
